FAERS Safety Report 5471237-8 (Version None)
Quarter: 2007Q3

REPORT INFORMATION
  Report Type: 
  Country: None (occurrence: None)
  Receive Date: 20070928
  Receipt Date: 20070920
  Transmission Date: 20080115
  Serious: Yes (Hospitalization)
  Sender: FDA-Public Use
  Company Number: US-ABBOTT-07P-163-0417873-00

PATIENT
  Sex: Male
  Weight: 109 kg

DRUGS (9)
  1. HUMIRA [Suspect]
     Indication: CROHN'S DISEASE
     Route: 058
     Dates: start: 20060701
  2. DILAUDID [Suspect]
     Indication: PROCEDURAL PAIN
     Route: 042
     Dates: start: 20070601, end: 20070601
  3. CRYSTALLINE VIT B12 INJ [Concomitant]
     Indication: VITAMIN SUPPLEMENTATION
     Route: 030
     Dates: start: 19970101
  4. VALSARTAN [Concomitant]
     Indication: HYPERTENSION
     Route: 048
     Dates: start: 20070801
  5. DULOXETINE HYDROCHLORIDE [Concomitant]
     Indication: DEPRESSION
     Route: 048
     Dates: start: 20070301
  6. DULOXETINE HYDROCHLORIDE [Concomitant]
     Indication: ANXIETY
  7. ROPINIROLE HCL [Concomitant]
     Indication: RESTLESS LEGS SYNDROME
     Route: 048
     Dates: start: 20060101
  8. CLONAZEPAM [Concomitant]
     Indication: ANXIETY
     Route: 048
     Dates: start: 20040101
  9. FUROSEMIDE [Concomitant]
     Indication: OEDEMA
     Route: 048
     Dates: start: 20040101

REACTIONS (5)
  - APHASIA [None]
  - DYSGRAPHIA [None]
  - GALLBLADDER DISORDER [None]
  - INTESTINAL MASS [None]
  - OEDEMA PERIPHERAL [None]
